FAERS Safety Report 7444834-8 (Version None)
Quarter: 2011Q2

REPORT INFORMATION
  Report Type: 
  Country: None (occurrence: None)
  Receive Date: 20110426
  Receipt Date: 20110426
  Transmission Date: 20111010
  Serious: Yes (Life-Threatening, Other)
  Sender: FDA-Public Use
  Company Number: None

PATIENT
  Age: 62 Year
  Sex: Male
  Weight: 120.6568 kg

DRUGS (1)
  1. ACTOS [Suspect]
     Indication: DIABETES MELLITUS
     Dosage: 30 MG 1 PER DAY
     Dates: start: 20110320, end: 20110423

REACTIONS (6)
  - WEIGHT INCREASED [None]
  - OEDEMA PERIPHERAL [None]
  - JOINT SWELLING [None]
  - PERICARDIAL EFFUSION [None]
  - BLOOD GLUCOSE DECREASED [None]
  - DYSPNOEA [None]
